FAERS Safety Report 10366311 (Version 2)
Quarter: 2014Q3

REPORT INFORMATION
  Report Type: Spontaneous
  Country: US (occurrence: US)
  Receive Date: 20140806
  Receipt Date: 20140806
  Transmission Date: 20150326
  Serious: Yes (Other)
  Sender: FDA-Public Use
  Company Number: US-MYLAN-2013S1014965

PATIENT

DRUGS (1)
  1. LEVOTHYROXINE SODIUM. [Suspect]
     Active Substance: LEVOTHYROXINE SODIUM
     Indication: HYPOTHYROIDISM
     Dosage: 88 ?G,QD
     Route: 048
     Dates: start: 2013, end: 2013

REACTIONS (4)
  - Throat tightness [None]
  - Urticaria [None]
  - Anaphylactic reaction [Recovered/Resolved]
  - Dyspnoea [None]

NARRATIVE: CASE EVENT DATE: 2013
